FAERS Safety Report 19765911 (Version 4)
Quarter: 2025Q4

REPORT INFORMATION
  Report Type: Spontaneous
  Country: EU (occurrence: EU)
  Receive Date: 20210831
  Receipt Date: 20251009
  Transmission Date: 20260117
  Serious: Yes (Other)
  Sender: AUROBINDO
  Company Number: EU-KRKA-RO2021K10297LIT

PATIENT
  Age: 17 Year
  Sex: Female

DRUGS (11)
  1. ARIPIPRAZOLE [Suspect]
     Active Substance: ARIPIPRAZOLE
     Indication: Catatonia
     Dosage: 5 MILLIGRAM, ONCE A DAY
     Route: 065
  2. ARIPIPRAZOLE [Suspect]
     Active Substance: ARIPIPRAZOLE
     Indication: Schizophrenia
     Dosage: 10 MILLIGRAM, ONCE A DAY
     Route: 065
  3. ARIPIPRAZOLE [Suspect]
     Active Substance: ARIPIPRAZOLE
     Dosage: 2.5 MILLIGRAM, ONCE A DAY
     Route: 065
  4. FLUOXETINE [Suspect]
     Active Substance: FLUOXETINE HYDROCHLORIDE
     Indication: Depression
     Dosage: 10 MILLIGRAM, ONCE A DAY
     Route: 065
  5. LORAZEPAM [Suspect]
     Active Substance: LORAZEPAM
     Indication: Catatonia
     Dosage: 1 MILLIGRAM, ONCE A DAY
     Route: 065
  6. LORAZEPAM [Suspect]
     Active Substance: LORAZEPAM
     Indication: Depression
     Dosage: 2 MILLIGRAM, ONCE A DAY
     Route: 065
  7. LORAZEPAM [Suspect]
     Active Substance: LORAZEPAM
     Indication: Psychotic disorder
     Dosage: 3 MILLIGRAM, ONCE A DAY
     Route: 065
  8. LORAZEPAM [Suspect]
     Active Substance: LORAZEPAM
     Indication: Schizophrenia
     Dosage: 2.5 MILLIGRAM, ONCE A DAY
     Route: 065
  9. RISPERIDONE [Suspect]
     Active Substance: RISPERIDONE
     Indication: Psychotic disorder
     Dosage: 1 MILLIGRAM, ONCE A DAY
     Route: 065
  10. RISPERIDONE [Suspect]
     Active Substance: RISPERIDONE
     Indication: Catatonia
  11. RISPERIDONE [Suspect]
     Active Substance: RISPERIDONE
     Indication: Schizophrenia

REACTIONS (7)
  - Tremor [Unknown]
  - Dysarthria [Unknown]
  - Hypoprolactinaemia [Unknown]
  - Sedation [Unknown]
  - Therapeutic product effect incomplete [Unknown]
  - Drug ineffective [Unknown]
  - Blood prolactin increased [Unknown]
